FAERS Safety Report 5064336-6 (Version None)
Quarter: 2006Q3

REPORT INFORMATION
  Report Type: 
  Country: None (occurrence: None)
  Receive Date: 20060728
  Receipt Date: 20060717
  Transmission Date: 20061208
  Serious: Yes (Hospitalization)
  Sender: FDA-Public Use
  Company Number: US-JNJFOC-20030707141

PATIENT
  Sex: Female
  Weight: 103.42 kg

DRUGS (25)
  1. REMICADE [Suspect]
     Route: 042
  2. REMICADE [Suspect]
     Route: 042
  3. REMICADE [Suspect]
     Route: 042
  4. REMICADE [Suspect]
     Route: 042
  5. REMICADE [Suspect]
     Route: 042
  6. REMICADE [Suspect]
     Route: 042
  7. REMICADE [Suspect]
     Indication: CROHN'S DISEASE
     Route: 042
  8. HYDROCHLOROTHIAZIDE [Suspect]
     Indication: DRUG USE FOR UNKNOWN INDICATION
     Route: 065
  9. ANTIDEPRESSANT [Suspect]
     Indication: DEPRESSION
     Route: 065
  10. ACETAMINOPHEN [Concomitant]
     Route: 048
  11. ACETAMINOPHEN [Concomitant]
     Route: 048
  12. ACETAMINOPHEN [Concomitant]
     Route: 048
  13. ACETAMINOPHEN [Concomitant]
     Route: 048
  14. ACETAMINOPHEN [Concomitant]
     Route: 048
  15. ACETAMINOPHEN [Concomitant]
     Route: 048
  16. ACETAMINOPHEN [Concomitant]
     Indication: PROPHYLAXIS
     Route: 048
  17. ANTIHISTAMINES [Concomitant]
     Route: 065
  18. ANTIHISTAMINES [Concomitant]
     Route: 065
  19. ANTIHISTAMINES [Concomitant]
     Route: 065
  20. ANTIHISTAMINES [Concomitant]
     Route: 065
  21. ANTIHISTAMINES [Concomitant]
     Route: 065
  22. ANTIHISTAMINES [Concomitant]
     Route: 065
  23. ANTIHISTAMINES [Concomitant]
     Indication: PROPHYLAXIS
     Route: 065
  24. AZATHIOPRINE SODIUM [Concomitant]
     Indication: CROHN'S DISEASE
     Route: 065
  25. HYPOGLYCEMIC [Concomitant]
     Indication: DIABETES MELLITUS
     Route: 065

REACTIONS (4)
  - DEPRESSION [None]
  - DIABETES MELLITUS [None]
  - HYPOKALAEMIA [None]
  - HYPOTENSION [None]
